FAERS Safety Report 19172769 (Version 1)
Quarter: 2021Q2

REPORT INFORMATION
  Report Type: Spontaneous
  Country: US (occurrence: US)
  Receive Date: 20210423
  Receipt Date: 20210423
  Transmission Date: 20210717
  Serious: Yes (Other)
  Sender: FDA-Public Use
  Company Number: US-SA-2021SA135171

PATIENT
  Sex: Male

DRUGS (2)
  1. DUPIXENT [Suspect]
     Active Substance: DUPILUMAB
  2. ISONIAZID. [Suspect]
     Active Substance: ISONIAZID

REACTIONS (2)
  - Tuberculosis [Unknown]
  - Cough [Not Recovered/Not Resolved]
